FAERS Safety Report 15599808 (Version 1)
Quarter: 2018Q4

REPORT INFORMATION
  Report Type: Spontaneous
  Country: PL (occurrence: PL)
  Receive Date: 20181108
  Receipt Date: 20181108
  Transmission Date: 20190205
  Serious: Yes (Other)
  Sender: FDA-Public Use
  Company Number: PL-ASTRAZENECA-2018SF43964

PATIENT
  Sex: Female

DRUGS (1)
  1. HELICID [Suspect]
     Active Substance: OMEPRAZOLE
     Route: 048

REACTIONS (16)
  - Iron deficiency [Unknown]
  - Erythema [Unknown]
  - Oedema [Not Recovered/Not Resolved]
  - Hypersensitivity [Unknown]
  - Tremor [Unknown]
  - Withdrawal syndrome [Unknown]
  - Drug dependence [Unknown]
  - Heart rate increased [Unknown]
  - Visual impairment [Not Recovered/Not Resolved]
  - Hypovitaminosis [Unknown]
  - Immune system disorder [Not Recovered/Not Resolved]
  - Food intolerance [Not Recovered/Not Resolved]
  - Blood sodium decreased [Unknown]
  - Arthralgia [Not Recovered/Not Resolved]
  - Blood pressure increased [Unknown]
  - Abdominal pain upper [Not Recovered/Not Resolved]
